FAERS Safety Report 9509824 (Version 1)
Quarter: 2013Q3

REPORT INFORMATION
  Report Type: Spontaneous
  Country: US (occurrence: US)
  Receive Date: 20130909
  Receipt Date: 20130909
  Transmission Date: 20140515
  Serious: No
  Sender: FDA-Public Use
  Company Number: US-BRISTOL-MYERS SQUIBB COMPANY-18832329

PATIENT
  Age: 55 Year
  Sex: Female
  Weight: 85.71 kg

DRUGS (4)
  1. ABILIFY [Suspect]
     Indication: BIPOLAR II DISORDER
     Dosage: 6WKS AGO
  2. PROZAC [Concomitant]
  3. SYNTHROID [Concomitant]
  4. TOPAMAX [Concomitant]
     Dosage: TOPAMAX 200 MG

REACTIONS (4)
  - Weight increased [Unknown]
  - Increased appetite [Unknown]
  - Terminal insomnia [Unknown]
  - Tremor [Unknown]
